FAERS Safety Report 21062812 (Version 1)
Quarter: 2022Q3

REPORT INFORMATION
  Report Type: Spontaneous
  Country: JP (occurrence: JP)
  Receive Date: 20220711
  Receipt Date: 20220711
  Transmission Date: 20221027
  Serious: Yes (Hospitalization, Other)
  Sender: FDA-Public Use
  Company Number: JP-ONO-2022JP018672

PATIENT
  Age: 53 Year
  Sex: Male
  Weight: 84.2 kg

DRUGS (11)
  1. PARSABIV [Suspect]
     Active Substance: ETELCALCETIDE HYDROCHLORIDE
     Indication: Hyperparathyroidism secondary
     Dosage: 5 MG, Q56H
     Route: 010
     Dates: start: 20181119
  2. DARBEPOETIN ALFA [Concomitant]
     Active Substance: DARBEPOETIN ALFA
     Dosage: 30 UG, QW
     Route: 065
     Dates: start: 20190416, end: 20191118
  3. DARBEPOETIN ALFA [Concomitant]
     Active Substance: DARBEPOETIN ALFA
     Dosage: 30 UG, QW
     Dates: start: 20200113, end: 20200210
  4. DARBEPOETIN ALFA [Concomitant]
     Active Substance: DARBEPOETIN ALFA
     Dosage: 20 UG, QW
     Dates: start: 20210419
  5. ROCALTROL [Concomitant]
     Active Substance: CALCITRIOL
     Dosage: 1 UG, Q84H
     Route: 065
     Dates: start: 20180709, end: 20200417
  6. ROCALTROL [Concomitant]
     Active Substance: CALCITRIOL
     Dosage: 0.5 UG, Q56H
     Dates: start: 20200420
  7. CALCIUM CARBONATE [Concomitant]
     Active Substance: CALCIUM CARBONATE
     Dosage: 3000 MG, EVERYDAY
     Route: 065
  8. CALCIUM CARBONATE [Concomitant]
     Active Substance: CALCIUM CARBONATE
     Dosage: 25 GRAM, QD
     Route: 065
  9. RENAGEL [Concomitant]
     Active Substance: SEVELAMER HYDROCHLORIDE
     Dosage: 6500 MG, EVERYDAY
     Route: 065
  10. Fesin [Concomitant]
     Dosage: 40 MG, QW
     Route: 065
     Dates: start: 20200518, end: 20200810
  11. Fesin [Concomitant]
     Dosage: 40 MG, QW
     Dates: start: 20220516

REACTIONS (6)
  - Gastric cancer [Recovered/Resolved]
  - Haemorrhoids [Not Recovered/Not Resolved]
  - Shunt stenosis [Recovered/Resolved]
  - Eyelid oedema [Recovered/Resolved]
  - Shunt stenosis [Recovered/Resolved]
  - Wound [Recovered/Resolved]

NARRATIVE: CASE EVENT DATE: 20190116
